FAERS Safety Report 9605850 (Version 1)
Quarter: 2013Q4

REPORT INFORMATION
  Report Type: Spontaneous
  Country: US (occurrence: US)
  Receive Date: 20131008
  Receipt Date: 20131008
  Transmission Date: 20140711
  Serious: No
  Sender: FDA-Public Use
  Company Number: US-AMGEN-USASP2013068200

PATIENT
  Sex: Female

DRUGS (3)
  1. XGEVA [Suspect]
     Indication: METASTASES TO BONE
     Dosage: UNK
     Route: 065
     Dates: start: 2012
  2. TAXOL [Concomitant]
  3. DOXIL                              /00055703/ [Concomitant]

REACTIONS (7)
  - Skin disorder [Unknown]
  - Skin exfoliation [Unknown]
  - Erythema [Unknown]
  - Dermatitis [Unknown]
  - Skin infection [Unknown]
  - Fatigue [Unknown]
  - Madarosis [Unknown]
